FAERS Safety Report 7504240-4 (Version None)
Quarter: 2011Q2

REPORT INFORMATION
  Report Type: 
  Country: None (occurrence: None)
  Receive Date: 20110525
  Receipt Date: 20110512
  Transmission Date: 20111010
  Serious: Yes (Hospitalization, Other)
  Sender: FDA-Public Use
  Company Number: US-UCBSA-032674

PATIENT
  Age: 60 Year
  Sex: Female
  Weight: 70.3 kg

DRUGS (13)
  1. MONTELUKAST SODIUM [Concomitant]
  2. PREDNISONE [Concomitant]
  3. INVESTIGATIONAL DRUG [Suspect]
     Route: 048
     Dates: start: 20090902, end: 20090916
  4. SPIRONOLACTONE [Suspect]
     Indication: DIURETIC THERAPY
  5. ADVAIR DISKUS 100/50 [Concomitant]
  6. LASIX [Suspect]
     Indication: DIURETIC THERAPY
     Route: 048
     Dates: start: 19910101
  7. LORTAB [Concomitant]
  8. CARVEDILOL [Concomitant]
  9. METOLAZONE [Suspect]
     Indication: DIURETIC THERAPY
     Dosage: 2.5 MG, 1 X /DAY MON, WED AND FRI
     Dates: start: 20090727
  10. INVESTIGATIONAL DRUG [Suspect]
     Indication: RHEUMATOID ARTHRITIS
     Route: 048
     Dates: start: 20080122, end: 20090831
  11. FOLIC ACID [Concomitant]
  12. WARFARIN SODIUM [Concomitant]
  13. METHOTREXATE [Concomitant]

REACTIONS (3)
  - RENAL FAILURE ACUTE [None]
  - NAUSEA [None]
  - DIARRHOEA [None]
